FAERS Safety Report 14045068 (Version 1)
Quarter: 2017Q4

REPORT INFORMATION
  Report Type: Spontaneous
  Country: AU (occurrence: AU)
  Receive Date: 20171005
  Receipt Date: 20171005
  Transmission Date: 20180321
  Serious: Yes (Hospitalization, Disabling, Other)
  Sender: FDA-Public Use
  Company Number: AU-CONCORDIA PHARMACEUTICALS INC.-GSH201708-004975

PATIENT
  Age: 62 Year
  Sex: Female

DRUGS (7)
  1. PERIACTIN [Concomitant]
     Active Substance: CYPROHEPTADINE HYDROCHLORIDE
     Indication: PRURITUS
  2. CALCIUM SUPPLEMENTS [Concomitant]
     Active Substance: CALCIUM
  3. CALCIUM SUPPLEMENTS [Concomitant]
     Active Substance: CALCIUM
  4. PARNATE [Suspect]
     Active Substance: TRANYLCYPROMINE SULFATE
     Indication: ANTIDEPRESSANT THERAPY
     Route: 048
     Dates: start: 2017, end: 2017
  5. PARNATE [Suspect]
     Active Substance: TRANYLCYPROMINE SULFATE
     Route: 048
  6. VITAMIN D [Concomitant]
     Active Substance: CHOLECALCIFEROL
  7. SIMVASTATIN. [Concomitant]
     Active Substance: SIMVASTATIN

REACTIONS (5)
  - Bedridden [Unknown]
  - Pruritus generalised [Not Recovered/Not Resolved]
  - Loss of consciousness [Recovered/Resolved]
  - Walking disability [Unknown]
  - Dizziness [Recovered/Resolved]

NARRATIVE: CASE EVENT DATE: 2017
